FAERS Safety Report 6503748-8 (Version None)
Quarter: 2009Q4

REPORT INFORMATION
  Report Type: 
  Country: None (occurrence: None)
  Receive Date: 20091217
  Receipt Date: 20091204
  Transmission Date: 20100525
  Serious: Yes (Hospitalization)
  Sender: FDA-Public Use
  Company Number: US-BRISTOL-MYERS SQUIBB COMPANY-14898035

PATIENT
  Age: 43 Year
  Sex: Male

DRUGS (1)
  1. ARIPIPRAZOLE [Suspect]
     Indication: SCHIZOPHRENIA
     Dosage: INTERRUPTED ON 18JUN08 DURATION 7DAYS TAKEN 300MG INTRAMUSCULAR FROM 4SEP09-13NOV09:71 DAYS
     Route: 048
     Dates: start: 20090904, end: 20091113

REACTIONS (1)
  - PSYCHOTIC DISORDER [None]
